FAERS Safety Report 6156979-3 (Version None)
Quarter: 2009Q2

REPORT INFORMATION
  Report Type: 
  Country: None (occurrence: None)
  Receive Date: 20090416
  Receipt Date: 20090409
  Transmission Date: 20091009
  Serious: Yes (Other)
  Sender: FDA-Public Use
  Company Number: US-JNJCH-2009010110

PATIENT
  Age: 21 Year
  Sex: Female
  Weight: 49.9 kg

DRUGS (2)
  1. BENADRYL [Suspect]
     Indication: PRURITUS
     Dosage: TEXT:UNSPECIFIED ONCE
     Route: 048
     Dates: start: 20060401, end: 20060401
  2. OXYCONTIN [Concomitant]
     Indication: PAIN
     Dosage: TEXT:UNSPECIFIED
     Route: 065

REACTIONS (3)
  - HYPERSENSITIVITY [None]
  - LOSS OF CONSCIOUSNESS [None]
  - OFF LABEL USE [None]
